FAERS Safety Report 8591547-5 (Version None)
Quarter: 2012Q3

REPORT INFORMATION
  Report Type: 
  Country: None (occurrence: None)
  Receive Date: 20120814
  Receipt Date: 20120807
  Transmission Date: 20120928
  Serious: No
  Sender: FDA-Public Use
  Company Number: US-PFIZER INC-2012193077

PATIENT
  Age: 71 Year
  Sex: Female
  Weight: 54.4 kg

DRUGS (2)
  1. AMLODIPINE BESYLATE [Suspect]
     Indication: HYPERTENSION
     Dosage: 10 MG, DAILY
  2. VISTARIL [Suspect]
     Indication: PRURITUS
     Dosage: 25 MG, 2 TO 3 TIMES A DAY
     Dates: start: 20080101

REACTIONS (4)
  - ASTHENIA [None]
  - MALAISE [None]
  - WEIGHT DECREASED [None]
  - DRUG INEFFECTIVE [None]
